FAERS Safety Report 14617581 (Version 1)
Quarter: 2018Q1

REPORT INFORMATION
  Report Type: Spontaneous
  Country: CN (occurrence: CN)
  Receive Date: 20180309
  Receipt Date: 20180309
  Transmission Date: 20180509
  Serious: Yes (Hospitalization, Other)
  Sender: FDA-Public Use
  Company Number: CN-BAYER-2018-038240

PATIENT
  Age: 5 Year
  Sex: Male
  Weight: 42 kg

DRUGS (3)
  1. KOGENATE FS [Suspect]
     Active Substance: ANTIHEMOPHILIC FACTOR, HUMAN RECOMBINANT
     Indication: FACTOR VIII DEFICIENCY
     Dosage: 4000 IU, BID
     Dates: start: 20171225, end: 20171231
  2. KOGENATE FS [Suspect]
     Active Substance: ANTIHEMOPHILIC FACTOR, HUMAN RECOMBINANT
     Indication: HAEMORRHAGE INTRACRANIAL
     Dosage: 2000 IU, BID
     Dates: end: 20180104
  3. KOGENATE FS [Suspect]
     Active Substance: ANTIHEMOPHILIC FACTOR, HUMAN RECOMBINANT
     Indication: FACTOR VIII DEFICIENCY

REACTIONS (5)
  - Anti factor VIII antibody positive [Not Recovered/Not Resolved]
  - Drug ineffective [None]
  - Peripheral swelling [None]
  - Musculoskeletal disorder [None]
  - Spontaneous haemorrhage [None]

NARRATIVE: CASE EVENT DATE: 201801
